FAERS Safety Report 23286315 (Version 1)
Quarter: 2023Q4

REPORT INFORMATION
  Report Type: Spontaneous
  Country: US (occurrence: US)
  Receive Date: 20231212
  Receipt Date: 20231212
  Transmission Date: 20240110
  Serious: Yes (Hospitalization, Disabling)
  Sender: FDA-Public Use
  Company Number: US-BoehringerIngelheim-2023-BI-277698

PATIENT
  Sex: Male

DRUGS (1)
  1. JARDIANCE [Suspect]
     Active Substance: EMPAGLIFLOZIN
     Indication: Type 2 diabetes mellitus
     Dates: start: 202306

REACTIONS (2)
  - Foot amputation [Recovered/Resolved with Sequelae]
  - Toe amputation [Recovered/Resolved with Sequelae]

NARRATIVE: CASE EVENT DATE: 20230616
